FAERS Safety Report 7648771-5 (Version None)
Quarter: 2011Q3

REPORT INFORMATION
  Report Type: 
  Country: None (occurrence: None)
  Receive Date: 20110801
  Receipt Date: 20110725
  Transmission Date: 20111222
  Serious: Yes (Other)
  Sender: FDA-Public Use
  Company Number: PHHY2011US57542

PATIENT
  Sex: Female
  Weight: 152 kg

DRUGS (7)
  1. CLARITIN [Concomitant]
     Dosage: UNK UKN, UNK
  2. VOLTAREN-XR [Suspect]
     Indication: ARTHRITIS
     Dosage: 100 MG, QD
     Route: 048
  3. SUDAFED 12 HOUR [Concomitant]
     Indication: HYPERSENSITIVITY
     Dosage: 30 MG, PRN
     Route: 048
  4. DICLOFENAC SODIUM [Suspect]
     Dosage: UNK UKN, UNK
  5. VOLTAREN [Suspect]
     Dosage: 75 MG, UNK
  6. LORATADINE [Concomitant]
     Indication: HYPERSENSITIVITY
     Dosage: 10 MG, PRN
     Route: 048
  7. MUCINUM [Concomitant]
     Indication: HYPERSENSITIVITY
     Dosage: UNK UKN, PRN
     Route: 048

REACTIONS (13)
  - NERVOUS SYSTEM DISORDER [None]
  - ABDOMINAL DISCOMFORT [None]
  - DYSLEXIA [None]
  - MEMORY IMPAIRMENT [None]
  - CONSTIPATION [None]
  - DRUG INEFFECTIVE [None]
  - FATIGUE [None]
  - GAIT DISTURBANCE [None]
  - ABDOMINAL PAIN UPPER [None]
  - DYSARTHRIA [None]
  - COLD-STIMULUS HEADACHE [None]
  - FEELING ABNORMAL [None]
  - RESPIRATORY RATE INCREASED [None]
